FAERS Safety Report 17751060 (Version 1)
Quarter: 2020Q2

REPORT INFORMATION
  Report Type: Spontaneous
  Country: US (occurrence: US)
  Receive Date: 20200506
  Receipt Date: 20200506
  Transmission Date: 20200714
  Serious: Yes (Death, Hospitalization, Other)
  Sender: FDA-Public Use
  Company Number: None

PATIENT
  Age: 66 Year
  Sex: Female
  Weight: 92 kg

DRUGS (19)
  1. ALBUTEROL. [Concomitant]
     Active Substance: ALBUTEROL
  2. FLUTICASONE PROPIONATE. [Concomitant]
     Active Substance: FLUTICASONE PROPIONATE
  3. FUROSEMIDE. [Concomitant]
     Active Substance: FUROSEMIDE
  4. HYDROCORTICONE 2.5% [Concomitant]
  5. INSULIN ASPART 100 U/ML [Concomitant]
  6. ASPIRIN. [Concomitant]
     Active Substance: ASPIRIN
  7. VITAMIN B12 [Concomitant]
     Active Substance: CYANOCOBALAMIN
  8. OXYCODONE/TYLENOL [Concomitant]
  9. PREDNISONE 5 MG [Concomitant]
     Active Substance: PREDNISONE
  10. CETIRIZINE [Concomitant]
     Active Substance: CETIRIZINE HYDROCHLORIDE
  11. ATENOLOL. [Concomitant]
     Active Substance: ATENOLOL
  12. XELJANZ [Suspect]
     Active Substance: TOFACITINIB CITRATE
     Indication: RHEUMATOID ARTHRITIS
     Route: 048
     Dates: start: 20190901, end: 20200101
  13. HYDROXYZINE [Concomitant]
     Active Substance: HYDROXYZINE HYDROCHLORIDE
  14. INSULIN GLARGINE 100 U/ML [Concomitant]
  15. OMEPRAZOLE. [Concomitant]
     Active Substance: OMEPRAZOLE
  16. AMLODIPINE [Concomitant]
     Active Substance: AMLODIPINE BESYLATE
  17. CROMOLYN SODIM 4% [Concomitant]
  18. CICLOPIROX OLAMINE 0.77 % TOPICAL [Concomitant]
  19. VALSARTAN. [Concomitant]
     Active Substance: VALSARTAN

REACTIONS (11)
  - Osteonecrosis [None]
  - Respiratory failure [None]
  - Renal failure [None]
  - Pulmonary oedema [None]
  - Acute respiratory distress syndrome [None]
  - Rhabdomyolysis [None]
  - Peripheral ischaemia [None]
  - Peripheral artery occlusion [None]
  - Post procedural complication [None]
  - Embolism [None]
  - Encephalopathy [None]

NARRATIVE: CASE EVENT DATE: 20200101
